FAERS Safety Report 7988218-2 (Version None)
Quarter: 2011Q4

REPORT INFORMATION
  Report Type: 
  Country: None (occurrence: None)
  Receive Date: 20111216
  Receipt Date: 20110614
  Transmission Date: 20120403
  Serious: No
  Sender: FDA-Public Use
  Company Number: US-BRISTOL-MYERS SQUIBB COMPANY-15812555

PATIENT
  Age: 10 Year
  Sex: Male

DRUGS (9)
  1. ABILIFY [Suspect]
     Dates: start: 20090901
  2. CLONIDINE [Concomitant]
  3. CALCIUM [Concomitant]
  4. FISH OIL [Concomitant]
  5. CONCERTA [Concomitant]
  6. MULTI-VITAMIN [Concomitant]
  7. ZANTAC [Concomitant]
  8. NAPROXEN (ALEVE) [Concomitant]
  9. STRATTERA [Concomitant]

REACTIONS (1)
  - JUVENILE ARTHRITIS [None]
